FAERS Safety Report 8381561-7 (Version None)
Quarter: 2012Q2

REPORT INFORMATION
  Report Type: 
  Country: None (occurrence: None)
  Receive Date: 20120523
  Receipt Date: 20120516
  Transmission Date: 20120825
  Serious: Yes (Other)
  Sender: FDA-Public Use
  Company Number: US-RB-040488-12

PATIENT
  Age: 30 Year
  Sex: Female

DRUGS (1)
  1. SUBOXONE [Suspect]
     Indication: PRODUCT USED FOR UNKNOWN INDICATION
     Dosage: UNKNOWN DOSAGE DETAILS
     Route: 065

REACTIONS (6)
  - DRUG WITHDRAWAL SYNDROME [None]
  - DIARRHOEA [None]
  - MUSCULOSKELETAL STIFFNESS [None]
  - HALLUCINATION [None]
  - VOMITING [None]
  - SUICIDAL IDEATION [None]
